APPROVED DRUG PRODUCT: NAPROXEN SODIUM
Active Ingredient: NAPROXEN SODIUM
Strength: EQ 500MG BASE
Dosage Form/Route: TABLET;ORAL
Application: A074480 | Product #001
Applicant: HIKMA PHARMACEUTICALS
Approved: May 14, 1996 | RLD: No | RS: No | Type: DISCN